FAERS Safety Report 19789721 (Version 1)
Quarter: 2021Q3

REPORT INFORMATION
  Report Type: Report from Study
  Country: MX (occurrence: MX)
  Receive Date: 20210904
  Receipt Date: 20210904
  Transmission Date: 20211014
  Serious: Yes (Death, Other)
  Sender: FDA-Public Use
  Company Number: NVSC2021MX201115

PATIENT
  Age: 69 Year
  Sex: Female
  Weight: 35 kg

DRUGS (1)
  1. ENTRESTO [Suspect]
     Active Substance: SACUBITRIL\VALSARTAN
     Indication: CARDIAC FAILURE
     Dosage: 200 MG, BID
     Route: 048
     Dates: start: 2019

REACTIONS (2)
  - Neoplasm malignant [Unknown]
  - Cardiac arrest [Fatal]

NARRATIVE: CASE EVENT DATE: 2020
